FAERS Safety Report 8680922 (Version 2)
Quarter: 2015Q2

REPORT INFORMATION
  Report Type: Report from Study
  Country: US (occurrence: US)
  Receive Date: 20120724
  Receipt Date: 20150624
  Transmission Date: 20150821
  Serious: Yes (Death, Life-Threatening, Other)
  Sender: FDA-Public Use
  Company Number: US-ROCHE-1091044

PATIENT
  Age: 63 Year
  Sex: Male

DRUGS (16)
  1. ACTIVASE [Suspect]
     Active Substance: ALTEPLASE
     Route: 042
  2. ATROPINE [Concomitant]
     Active Substance: ATROPINE
     Route: 065
  3. VERSED [Concomitant]
     Active Substance: MIDAZOLAM HYDROCHLORIDE
     Dosage: PRN
     Route: 042
  4. ACTIVASE [Suspect]
     Active Substance: ALTEPLASE
     Indication: ACUTE MYOCARDIAL INFARCTION
     Route: 042
  5. ORINASE [Concomitant]
     Active Substance: TOLBUTAMIDE
     Route: 048
  6. ISUPREL [Concomitant]
     Active Substance: ISOPROTERENOL HYDROCHLORIDE
  7. PHENERGAN [Concomitant]
     Active Substance: PROMETHAZINE HYDROCHLORIDE
     Dosage: PRN
     Route: 042
  8. HALCION [Concomitant]
     Active Substance: TRIAZOLAM
     Route: 048
  9. SURFAK (UNITED STATES) [Concomitant]
     Route: 048
  10. ACTIVASE [Suspect]
     Active Substance: ALTEPLASE
     Route: 042
  11. DOPAMINE [Concomitant]
     Active Substance: DOPAMINE\DOPAMINE HYDROCHLORIDE
     Route: 065
  12. SOLU-MEDROL [Concomitant]
     Active Substance: METHYLPREDNISOLONE SODIUM SUCCINATE
  13. ACTIVASE [Suspect]
     Active Substance: ALTEPLASE
     Route: 042
  14. LIDOCAINE. [Concomitant]
     Active Substance: LIDOCAINE
     Route: 042
  15. EPINEPHRINE. [Concomitant]
     Active Substance: EPINEPHRINE
     Route: 042
  16. LIDOCAINE. [Concomitant]
     Active Substance: LIDOCAINE
     Route: 065

REACTIONS (5)
  - Cardiac failure congestive [Unknown]
  - Ventricular fibrillation [Unknown]
  - Cardio-respiratory arrest [Unknown]
  - Death [Fatal]
  - Ventricular tachycardia [Unknown]
